FAERS Safety Report 13430176 (Version 1)
Quarter: 2017Q2

REPORT INFORMATION
  Report Type: Spontaneous
  Country: GB (occurrence: GB)
  Receive Date: 20170412
  Receipt Date: 20170412
  Transmission Date: 20170830
  Serious: Yes (Other)
  Sender: FDA-Public Use
  Company Number: GB-ASTRAZENECA-2017SE37107

PATIENT
  Age: 72 Year
  Sex: Male
  Weight: 76.7 kg

DRUGS (5)
  1. GAVISCON DOUBLE ACTION [Concomitant]
     Dosage: AS REQUIRED IN LIEU OF OMEPRAZOLE.
  2. OMEGA-3 FISH OIL [Concomitant]
     Active Substance: FISH OIL\OMEGA-3 FATTY ACIDS
  3. CLENIL MODULITE [Concomitant]
     Active Substance: BECLOMETHASONE DIPROPIONATE
     Route: 055
  4. TERBUTALINE [Concomitant]
     Active Substance: TERBUTALINE
     Route: 055
  5. OMEPRAZOL [Suspect]
     Active Substance: OMEPRAZOLE
     Indication: GASTROOESOPHAGEAL REFLUX DISEASE
     Route: 048
     Dates: start: 20161005, end: 20161111

REACTIONS (2)
  - Pruritus generalised [Recovered/Resolved]
  - Rash generalised [Recovered/Resolved]

NARRATIVE: CASE EVENT DATE: 20161106
